FAERS Safety Report 11048910 (Version 1)
Quarter: 2015Q2

REPORT INFORMATION
  Report Type: Spontaneous
  Country: US (occurrence: US)
  Receive Date: 20150420
  Receipt Date: 20150420
  Transmission Date: 20150821
  Serious: Yes (Hospitalization)
  Sender: FDA-Public Use
  Company Number: PHHY2015US045750

PATIENT
  Age: 77 Year
  Sex: Female

DRUGS (3)
  1. CHLORDIAZEPOXIDE [Suspect]
     Active Substance: CHLORDIAZEPOXIDE
     Indication: DEPRESSION
     Route: 065
  2. CHLORDIAZEPOXIDE [Suspect]
     Active Substance: CHLORDIAZEPOXIDE
     Indication: ANXIETY
  3. CHLORDIAZEPOXIDE [Suspect]
     Active Substance: CHLORDIAZEPOXIDE
     Indication: PANIC DISORDER

REACTIONS (8)
  - Confusional state [Recovered/Resolved]
  - Negativism [Recovered/Resolved]
  - Muscle rigidity [Recovered/Resolved]
  - Verbigeration [Recovered/Resolved]
  - Stereotypy [Recovered/Resolved]
  - Posturing [Recovered/Resolved]
  - Catatonia [Recovered/Resolved]
  - Eye movement disorder [Recovered/Resolved]
